FAERS Safety Report 5742129-1 (Version None)
Quarter: 2008Q2

REPORT INFORMATION
  Report Type: 
  Country: None (occurrence: None)
  Receive Date: 20080515
  Receipt Date: 20080505
  Transmission Date: 20081010
  Serious: Yes (Death)
  Sender: FDA-Public Use
  Company Number: 163-21880-08050369

PATIENT
  Age: 60 Year
  Sex: Female

DRUGS (3)
  1. REVLIMID [Suspect]
     Indication: MULTIPLE MYELOMA
     Dosage: 10 MG, 1 IN 1 D, ORAL; 25 MG, 1 IN 1 D, ORAL
     Route: 048
     Dates: start: 20070731, end: 20071101
  2. REVLIMID [Suspect]
     Indication: MULTIPLE MYELOMA
     Dosage: 10 MG, 1 IN 1 D, ORAL; 25 MG, 1 IN 1 D, ORAL
     Route: 048
     Dates: start: 20080225
  3. REVLIMID [Suspect]

REACTIONS (12)
  - BLOOD PRESSURE INCREASED [None]
  - DRY SKIN [None]
  - DYSPNOEA [None]
  - EPISTAXIS [None]
  - HAEMORRHAGE [None]
  - JOINT SPRAIN [None]
  - LARYNGITIS [None]
  - NERVOUSNESS [None]
  - PLATELET COUNT DECREASED [None]
  - RED BLOOD CELL COUNT DECREASED [None]
  - RESPIRATORY DISORDER [None]
  - WHEEZING [None]
